FAERS Safety Report 9252045 (Version 1)
Quarter: 2013Q2

REPORT INFORMATION
  Report Type: Spontaneous
  Country: US (occurrence: US)
  Receive Date: 20130424
  Receipt Date: 20130424
  Transmission Date: 20140414
  Serious: No
  Sender: FDA-Public Use
  Company Number: US-PFIZER INC-2013109837

PATIENT
  Age: 71 Year
  Sex: Female
  Weight: 108 kg

DRUGS (2)
  1. PRISTIQ [Suspect]
     Indication: POOR QUALITY SLEEP
     Dosage: UNK
  2. PRISTIQ [Suspect]
     Indication: DEPRESSION

REACTIONS (3)
  - Wrong technique in drug usage process [Unknown]
  - Nightmare [Recovered/Resolved]
  - Feeling abnormal [Unknown]
